FAERS Safety Report 13174456 (Version 1)
Quarter: 2017Q1

REPORT INFORMATION
  Report Type: Spontaneous
  Country: JP (occurrence: JP)
  Receive Date: 20170201
  Receipt Date: 20170201
  Transmission Date: 20170428
  Serious: Yes (Other)
  Sender: FDA-Public Use
  Company Number: JP-INCYTE CORPORATION-2017IN000665

PATIENT
  Age: 53 Year
  Sex: Male

DRUGS (1)
  1. JAKAVI [Suspect]
     Active Substance: RUXOLITINIB
     Indication: POLYCYTHAEMIA VERA
     Dosage: UNK
     Route: 048

REACTIONS (4)
  - Platelet count decreased [Unknown]
  - Tuberculosis [Unknown]
  - White blood cell count decreased [Unknown]
  - Pyrexia [Unknown]
